FAERS Safety Report 10167760 (Version 2)
Quarter: 2014Q2

REPORT INFORMATION
  Report Type: Spontaneous
  Country: FR (occurrence: FR)
  Receive Date: 20140512
  Receipt Date: 20140522
  Transmission Date: 20141212
  Serious: Yes (Death, Other)
  Sender: FDA-Public Use
  Company Number: FR-TEVA-479444ISR

PATIENT
  Age: 21 Year
  Sex: Female

DRUGS (17)
  1. AMOXICILLIN CLAVULANIC ACID TEVA [Suspect]
     Route: 048
     Dates: start: 20130720
  2. ARESTAL [Suspect]
     Indication: DIARRHOEA
     Dates: start: 20130725
  3. MOTILIUM 10 MG [Suspect]
     Indication: NAUSEA
     Dosage: 10 MILLIGRAM DAILY;
     Route: 048
     Dates: start: 20130726
  4. CONTRAMAL 100 MG/2 ML [Suspect]
     Indication: HEADACHE
     Dosage: 1 DOSAGE FORMS DAILY; ONLY ONE INTAKE
     Route: 042
     Dates: start: 20130725
  5. PRIMPERAN [Suspect]
     Indication: NAUSEA
     Dosage: 1 DOSAGE FORMS DAILY; ONLY ONE INTAKE
     Route: 042
     Dates: start: 20130725
  6. ZOLPIDEM MYLAN 10 MG [Suspect]
     Indication: INSOMNIA
     Dosage: 10 MILLIGRAM DAILY;
     Route: 048
     Dates: start: 20130725
  7. ALPRAZOLAM MYLAN 0.25 MG [Suspect]
     Indication: ANXIETY
     Route: 048
     Dates: start: 20130711
  8. ESOMEPRAZOLE MYLAN 20 MG [Suspect]
     Dosage: 20 MILLIGRAM DAILY;
     Route: 048
     Dates: start: 20130607
  9. DAILY [Suspect]
     Indication: CONTRACEPTION
     Dosage: 1 DOSAGE FORMS DAILY;
     Route: 048
     Dates: start: 2010
  10. PREDNISONE MYLAN 50 MG [Suspect]
     Indication: FOCAL SEGMENTAL GLOMERULOSCLEROSIS
     Dosage: 50 MILLIGRAM DAILY;
     Route: 048
     Dates: start: 20130607
  11. ATORVASTATINE MYLAN 20 MG [Suspect]
     Indication: HYPERCHOLESTEROLAEMIA
     Dosage: 20 MILLIGRAM DAILY;
     Route: 048
     Dates: start: 20130529
  12. MONAZOL [Concomitant]
     Route: 067
  13. IRBESARTAN MYLAN 150 MG [Concomitant]
     Indication: HYPERTENSION
     Route: 048
  14. CACIT VITAMINE D3 [Concomitant]
     Route: 048
  15. SPASFON [Concomitant]
     Indication: VISCERAL PAIN
     Route: 048
     Dates: start: 20130720
  16. DOLIPRANE 1000 MG [Concomitant]
     Indication: PAIN
     Route: 048
     Dates: start: 20130718
  17. PARACETAMOL PANPHARMA [Concomitant]
     Route: 042
     Dates: start: 20130725

REACTIONS (4)
  - Completed suicide [Fatal]
  - Decreased appetite [Not Recovered/Not Resolved]
  - Insomnia [Not Recovered/Not Resolved]
  - Anxiety [Not Recovered/Not Resolved]
